FAERS Safety Report 20594193 (Version 1)
Quarter: 2022Q1

REPORT INFORMATION
  Report Type: Report from Study
  Country: US (occurrence: US)
  Receive Date: 20220315
  Receipt Date: 20220315
  Transmission Date: 20220423
  Serious: Yes (Other)
  Sender: FDA-Public Use
  Company Number: US-GILEAD-2022-0573011

PATIENT
  Age: 12 Year
  Sex: Male

DRUGS (4)
  1. AZTREONAM LYSINE [Suspect]
     Active Substance: AZTREONAM LYSINE
     Indication: Bronchiectasis
     Dosage: 75 MG, TID
     Route: 055
  2. BETHKIS [Concomitant]
     Active Substance: TOBRAMYCIN
  3. AZITHROMYCIN [Concomitant]
     Active Substance: AZITHROMYCIN
  4. PULMOZYME [Concomitant]
     Active Substance: DORNASE ALFA
     Dosage: UNK

REACTIONS (4)
  - Brain neoplasm [Unknown]
  - Pneumonia [Recovered/Resolved]
  - Pneumonia [Not Recovered/Not Resolved]
  - Foot operation [Unknown]

NARRATIVE: CASE EVENT DATE: 20211201
